FAERS Safety Report 19709956 (Version 4)
Quarter: 2021Q3

REPORT INFORMATION
  Report Type: Report from Study
  Country: IE (occurrence: IE)
  Receive Date: 20210816
  Receipt Date: 20210928
  Transmission Date: 20211014
  Serious: Yes (Hospitalization, Other)
  Sender: FDA-Public Use
  Company Number: NVSC2021IE168254

PATIENT
  Age: 44 Year
  Sex: Female
  Weight: 66.5 kg

DRUGS (3)
  1. LEE011 [Suspect]
     Active Substance: RIBOCICLIB
     Indication: HER2 NEGATIVE BREAST CANCER
     Dosage: 400 MG
     Route: 048
     Dates: start: 20200910, end: 20210507
  2. ANASTROZOLE. [Suspect]
     Active Substance: ANASTROZOLE
     Indication: HER2 NEGATIVE BREAST CANCER
     Dosage: 1 MG
     Route: 048
     Dates: start: 20200910
  3. GOSERELIN [Suspect]
     Active Substance: GOSERELIN
     Indication: HER2 NEGATIVE BREAST CANCER
     Dosage: 3.6 MG
     Route: 048
     Dates: start: 20200910

REACTIONS (1)
  - Hepatitis [Recovering/Resolving]

NARRATIVE: CASE EVENT DATE: 20210201
